FAERS Safety Report 9752058 (Version 2)
Quarter: 2014Q1

REPORT INFORMATION
  Report Type: Report from Study
  Country: DE (occurrence: DE)
  Receive Date: 20131213
  Receipt Date: 20140121
  Transmission Date: 20141002
  Serious: Yes (Hospitalization)
  Sender: FDA-Public Use
  Company Number: DE-009507513-1312DEU002929

PATIENT
  Age: 53 Year
  Sex: Male

DRUGS (1)
  1. BOCEPREVIR [Suspect]
     Indication: CHRONIC HEPATITIS C
     Dosage: STRENGHT 200 MG, UNK
     Route: 048
     Dates: start: 20130617

REACTIONS (1)
  - Alcoholism [Not Recovered/Not Resolved]
